FAERS Safety Report 15701374 (Version 1)
Quarter: 2018Q4

REPORT INFORMATION
  Report Type: Spontaneous
  Country: GB (occurrence: GB)
  Receive Date: 20181207
  Receipt Date: 20181207
  Transmission Date: 20190205
  Serious: Yes (Other)
  Sender: FDA-Public Use
  Company Number: GB-TEVA-2018-GB-983262

PATIENT
  Age: 70 Year
  Sex: Female
  Weight: 70.76 kg

DRUGS (6)
  1. ALVERINE [Concomitant]
     Active Substance: ALVERINE
  2. SALBUTAMOL [Concomitant]
     Active Substance: ALBUTEROL
  3. GAVISCON ADVANCE [Concomitant]
     Active Substance: POTASSIUM BICARBONATE\SODIUM ALGINATE
  4. LANSOPRAZOLE. [Suspect]
     Active Substance: LANSOPRAZOLE
     Indication: GASTROOESOPHAGEAL REFLUX DISEASE
     Route: 048
     Dates: start: 2017
  5. SIRDUPLA [Concomitant]
     Active Substance: FLUTICASONE PROPIONATE\SALMETEROL XINAFOATE
  6. FYBOGEL [Concomitant]
     Active Substance: PLANTAGO OVATA SEED

REACTIONS (3)
  - Pain in extremity [Unknown]
  - Peripheral swelling [Recovered/Resolved]
  - Joint swelling [Recovered/Resolved]

NARRATIVE: CASE EVENT DATE: 2017
